APPROVED DRUG PRODUCT: TYBOST
Active Ingredient: COBICISTAT
Strength: 90MG
Dosage Form/Route: TABLET;ORAL
Application: N203094 | Product #002
Applicant: GILEAD SCIENCES INC
Approved: Jun 20, 2025 | RLD: Yes | RS: No | Type: DISCN

PATENTS:
Patent 8148374 | Expires: Sep 3, 2029
Patent 10039718 | Expires: Oct 6, 2032
Patent 10039718*PED | Expires: Apr 6, 2033
Patent 8148374*PED | Expires: Mar 3, 2030